FAERS Safety Report 5066170-X (Version None)
Quarter: 2006Q3

REPORT INFORMATION
  Report Type: 
  Country: None (occurrence: None)
  Receive Date: 20060705
  Receipt Date: 20051206
  Transmission Date: 20061208
  Serious: Yes (Hospitalization)
  Sender: FDA-Public Use
  Company Number: US-2005-009728

PATIENT
  Age: 34 Year
  Sex: Female
  Weight: 49 kg

DRUGS (7)
  1. YASMIN [Suspect]
     Indication: ORAL CONTRACEPTION
     Dosage: 1 TAB(S), 1X/DAY, ORAL
     Route: 048
     Dates: start: 20050220, end: 20050226
  2. CARDIZEM [Concomitant]
  3. CLONIDINE [Concomitant]
  4. NOVOLOG [Concomitant]
  5. PREDNISONE [Concomitant]
  6. LASIX [Concomitant]
  7. ACE INHIBITOR NOS [Concomitant]

REACTIONS (1)
  - HYPERKALAEMIA [None]
